FAERS Safety Report 6647612-2 (Version None)
Quarter: 2010Q1

REPORT INFORMATION
  Report Type: 
  Country: None (occurrence: None)
  Receive Date: 20100323
  Receipt Date: 20100323
  Transmission Date: 20100710
  Serious: Yes (Life-Threatening)
  Sender: FDA-Public Use
  Company Number: None

PATIENT
  Sex: Male
  Weight: 56.6996 kg

DRUGS (1)
  1. AZATHIOPRINE [Suspect]
     Indication: COLITIS ULCERATIVE
     Dosage: 1 TAB 1 X DAILY PO
     Route: 048
     Dates: start: 20030101, end: 20090301

REACTIONS (1)
  - HEPATOSPLENIC T-CELL LYMPHOMA [None]
